FAERS Safety Report 6782166-1 (Version None)
Quarter: 2010Q2

REPORT INFORMATION
  Report Type: 
  Country: None (occurrence: None)
  Receive Date: 20100621
  Receipt Date: 20100610
  Transmission Date: 20101027
  Serious: Yes (Hospitalization)
  Sender: FDA-Public Use
  Company Number: PHHY2010MX38088

PATIENT
  Age: 82 Year
  Sex: Female

DRUGS (5)
  1. GALVUS [Suspect]
     Indication: DIABETES MELLITUS
     Dosage: (50 MG), 2 DF, QD
     Dates: start: 20090201, end: 20100601
  2. DIOVAN HCT [Suspect]
     Indication: HYPERTENSION
     Dosage: 1 DF, QD
  3. FORTEO [Concomitant]
  4. BIVCANT [Concomitant]
  5. PADIET [Concomitant]

REACTIONS (2)
  - BLOOD GLUCOSE INCREASED [None]
  - GASTRIC ULCER PERFORATION [None]
